FAERS Safety Report 4342175-9 (Version None)
Quarter: 2004Q1

REPORT INFORMATION
  Report Type: 
  Country: None (occurrence: None)
  Receive Date: 20040329
  Receipt Date: 20031204
  Transmission Date: 20041129
  Serious: No
  Sender: FDA-Public Use
  Company Number: USA031253991

PATIENT
  Age: 52 Year
  Sex: Female
  Weight: 76 kg

DRUGS (5)
  1. STRATTERA [Suspect]
     Indication: ATTENTION DEFICIT/HYPERACTIVITY DISORDER
     Dosage: 40 MG/DAY
     Dates: start: 20030701
  2. LEVOXYL [Concomitant]
  3. MEDROXYPROGESTERONE [Concomitant]
  4. MULTI-VITAMIN [Concomitant]
  5. FOSAMAX [Concomitant]

REACTIONS (1)
  - CONTUSION [None]
